FAERS Safety Report 20309809 (Version 2)
Quarter: 2022Q1

REPORT INFORMATION
  Report Type: Spontaneous
  Country: FR (occurrence: FR)
  Receive Date: 20220107
  Receipt Date: 20220321
  Transmission Date: 20220423
  Serious: Yes (Other)
  Sender: FDA-Public Use
  Company Number: None

PATIENT
  Age: 35 Year
  Sex: Female

DRUGS (2)
  1. XANAX [Suspect]
     Active Substance: ALPRAZOLAM
     Dosage: MAXIMUM 3 TO 4 MG A DAY
     Route: 048
     Dates: start: 2013, end: 20210618
  2. VALIUM [Suspect]
     Active Substance: DIAZEPAM
     Dosage: 15 TO 20 MG A DAY
     Route: 048
     Dates: start: 201903

REACTIONS (2)
  - Drug dependence [Recovering/Resolving]
  - Drug detoxification [Recovering/Resolving]

NARRATIVE: CASE EVENT DATE: 20130101
